FAERS Safety Report 8239145-7 (Version None)
Quarter: 2012Q1

REPORT INFORMATION
  Report Type: 
  Country: None (occurrence: None)
  Receive Date: 20120328
  Receipt Date: 20120319
  Transmission Date: 20120608
  Serious: Yes (Hospitalization)
  Sender: FDA-Public Use
  Company Number: US-BIOGENIDEC-2012BI007556

PATIENT
  Age: 50 Year
  Sex: Female

DRUGS (2)
  1. TYSABRI [Suspect]
     Indication: MULTIPLE SCLEROSIS
     Route: 042
     Dates: start: 20080520, end: 20090206
  2. TYSABRI [Suspect]
     Route: 042
     Dates: start: 20100526, end: 20120119

REACTIONS (14)
  - UROSEPSIS [None]
  - LOWER RESPIRATORY TRACT INFECTION FUNGAL [None]
  - BLADDER DISORDER [None]
  - PROTEIN TOTAL ABNORMAL [None]
  - BENIGN NEOPLASM OF BLADDER [None]
  - LUNG DISORDER [None]
  - MEMORY IMPAIRMENT [None]
  - CANDIDIASIS [None]
  - ASPIRATION [None]
  - VISUAL IMPAIRMENT [None]
  - PNEUMONIA [None]
  - DEHYDRATION [None]
  - OROPHARYNGEAL BLISTERING [None]
  - SEPSIS [None]
